FAERS Safety Report 4380600-8 (Version None)
Quarter: 2004Q2

REPORT INFORMATION
  Report Type: 
  Country: None (occurrence: None)
  Receive Date: 20040618
  Receipt Date: 20040608
  Transmission Date: 20050107
  Serious: Yes (Other)
  Sender: FDA-Public Use
  Company Number: 369522

PATIENT
  Age: 67 Year
  Sex: Male

DRUGS (1)
  1. COREG [Suspect]
     Indication: HYPERTENSION
     Dosage: 25MG PER DAY
     Route: 048
     Dates: start: 20040403

REACTIONS (3)
  - CARDIAC DISORDER [None]
  - CHEST DISCOMFORT [None]
  - TACHYCARDIA [None]
